FAERS Safety Report 5787882-6 (Version None)
Quarter: 2008Q2

REPORT INFORMATION
  Report Type: 
  Country: None (occurrence: None)
  Receive Date: 20080624
  Receipt Date: 20080624
  Transmission Date: 20081010
  Serious: Yes (Other)
  Sender: FDA-Public Use
  Company Number: None

PATIENT
  Age: 52 Year
  Sex: Female
  Weight: 56.6996 kg

DRUGS (3)
  1. GADOLINIUM ? ? [Suspect]
     Indication: HEPATIC LESION
     Dates: start: 20051024, end: 20080509
  2. GADOLINIUM ? ? [Suspect]
     Indication: LIVER DISORDER
     Dates: start: 20051024, end: 20080509
  3. GADOLINIUM ? ? [Suspect]
     Indication: MULTIPLE SCLEROSIS
     Dates: start: 20051024, end: 20080509

REACTIONS (12)
  - ABDOMINAL DISTENSION [None]
  - BLOOD BLISTER [None]
  - BLOOD PRESSURE INCREASED [None]
  - HEADACHE [None]
  - ILL-DEFINED DISORDER [None]
  - LIVER DISORDER [None]
  - MIGRAINE [None]
  - NAUSEA [None]
  - OEDEMA PERIPHERAL [None]
  - PRURITUS [None]
  - SWELLING [None]
  - VOMITING PROJECTILE [None]
